FAERS Safety Report 18715639 (Version 2)
Quarter: 2021Q2

REPORT INFORMATION
  Report Type: Spontaneous
  Country: NP (occurrence: NP)
  Receive Date: 20210108
  Receipt Date: 20210401
  Transmission Date: 20210717
  Serious: Yes (Hospitalization, Other)
  Sender: FDA-Public Use
  Company Number: NP-SUN PHARMACEUTICAL INDUSTRIES LTD-2020RR-274586

PATIENT
  Age: 16 Year
  Sex: Male

DRUGS (1)
  1. AZITHROMYCIN ANHYDROUS. [Suspect]
     Active Substance: AZITHROMYCIN ANHYDROUS
     Indication: ACNE
     Dosage: UNK, DAILY
     Route: 065

REACTIONS (3)
  - Acute generalised exanthematous pustulosis [Recovering/Resolving]
  - Lactic acidosis [Recovering/Resolving]
  - Delirium [Recovering/Resolving]
